FAERS Safety Report 16439641 (Version 6)
Quarter: 2019Q3

REPORT INFORMATION
  Report Type: Spontaneous
  Country: JP (occurrence: JP)
  Receive Date: 20190617
  Receipt Date: 20190815
  Transmission Date: 20191004
  Serious: Yes (Other)
  Sender: FDA-Public Use
  Company Number: JP-PFIZER INC-2019256849

PATIENT
  Age: 67 Year
  Sex: Male
  Weight: 80 kg

DRUGS (7)
  1. DENOTAS [Concomitant]
     Active Substance: CALCIUM CARBONATE\CHOLECALCIFEROL\MAGNESIUM CARBONATE
     Indication: OSTEOPOROSIS
     Dosage: 2 PIECES, ONCE DAILY
     Route: 048
     Dates: start: 20151026, end: 20190515
  2. LIPITOR [Suspect]
     Active Substance: ATORVASTATIN CALCIUM
     Indication: DYSLIPIDAEMIA
     Dosage: 5 MG, ALTERNATE DAY
     Route: 048
     Dates: start: 20080307
  3. BAYASPIRIN [Concomitant]
     Active Substance: ASPIRIN
     Indication: PARAPLEGIA
     Dosage: 100 MG, 1X/DAY (PER ORAL NOS)
     Route: 048
     Dates: start: 20080307
  4. NORVASC [Concomitant]
     Active Substance: AMLODIPINE BESYLATE
     Indication: HYPERTENSION
     Dosage: 5 MG, 1X/DAY (PER ORAL NOS)
     Route: 048
     Dates: start: 20080307
  5. EVENITY [Suspect]
     Active Substance: ROMOSOZUMAB-AQQG
     Indication: OSTEOPOROSIS
     Dosage: 105 MG, DAILY
     Route: 058
     Dates: start: 20190313, end: 20190313
  6. ZETIA [Concomitant]
     Active Substance: EZETIMIBE
     Indication: DYSLIPIDAEMIA
     Dosage: 10 MG, 1X/DAY (PER ORAL NOS)
     Route: 048
     Dates: start: 20101222
  7. NEUROTROPIN [CYANOCOBALAMIN;LIDOCAINE HYDROCHLORIDE;PYRIDOXINE HYDROCH [Concomitant]
     Indication: PARAPLEGIA
     Dosage: 4N, THRICE DAILY
     Route: 048
     Dates: start: 20080307

REACTIONS (5)
  - Hypoaesthesia [Recovered/Resolved]
  - Blood alkaline phosphatase increased [Unknown]
  - Paraesthesia [Unknown]
  - Off label use [Unknown]
  - Product use issue [Unknown]

NARRATIVE: CASE EVENT DATE: 20080307
